FAERS Safety Report 6762048-1 (Version None)
Quarter: 2010Q2

REPORT INFORMATION
  Report Type: 
  Country: None (occurrence: None)
  Receive Date: 20100609
  Receipt Date: 20100526
  Transmission Date: 20101027
  Serious: No
  Sender: FDA-Public Use
  Company Number: US-B.I. PHARMACEUTICALS,INC./RIDGEFIELD-2010-BP-05899BP

PATIENT
  Age: 83 Year
  Sex: Female

DRUGS (6)
  1. TWYNSTA [Suspect]
     Indication: HYPERTENSION
     Route: 048
     Dates: start: 20100524, end: 20100525
  2. DIGOXIN [Concomitant]
     Indication: PALPITATIONS
  3. PLAVIX [Concomitant]
     Indication: STENT PLACEMENT
  4. LIPITOR [Concomitant]
     Indication: BLOOD CHOLESTEROL INCREASED
  5. ASPIRIN [Concomitant]
     Indication: STENT PLACEMENT
  6. PREVACID [Concomitant]
     Indication: GASTROOESOPHAGEAL REFLUX DISEASE

REACTIONS (5)
  - COUGH [None]
  - OROPHARYNGEAL PAIN [None]
  - PALPITATIONS [None]
  - PYREXIA [None]
  - RHINORRHOEA [None]
